FAERS Safety Report 4591187-9 (Version None)
Quarter: 2005Q1

REPORT INFORMATION
  Report Type: 
  Country: None (occurrence: None)
  Receive Date: 20050218
  Receipt Date: 20050203
  Transmission Date: 20050727
  Serious: No
  Sender: FDA-Public Use
  Company Number: FR-2005-001478

PATIENT
  Age: 43 Year
  Sex: Female

DRUGS (1)
  1. MIRENA [Suspect]
     Dosage: 20 UG CONT INTRA-UTERINE
     Route: 015
     Dates: start: 20001016, end: 20041101

REACTIONS (2)
  - DEVICE FAILURE [None]
  - IUCD COMPLICATION [None]
